FAERS Safety Report 4959799-8 (Version None)
Quarter: 2006Q1

REPORT INFORMATION
  Report Type: 
  Country: None (occurrence: None)
  Receive Date: 20060324
  Receipt Date: 20060120
  Transmission Date: 20060701
  Serious: No
  Sender: FDA-Public Use
  Company Number: 2006027283

PATIENT
  Age: 55 Year
  Sex: Male
  Weight: 171.4597 kg

DRUGS (1)
  1. BEXTRA [Suspect]
     Indication: BURSITIS
     Dosage: 20 MG, (20 MG, 1 IN 1 D), ORAL
     Route: 048
     Dates: start: 20040517, end: 20050401

REACTIONS (2)
  - DERMATITIS CONTACT [None]
  - SUPERINFECTION [None]
